FAERS Safety Report 10615378 (Version 3)
Quarter: 2015Q2

REPORT INFORMATION
  Report Type: Spontaneous
  Country: US (occurrence: US)
  Receive Date: 20141201
  Receipt Date: 20150626
  Transmission Date: 20150821
  Serious: No
  Sender: FDA-Public Use
  Company Number: US-PFIZER INC-2014324462

PATIENT
  Age: 47 Year
  Sex: Female

DRUGS (1)
  1. ADVIL [Suspect]
     Active Substance: IBUPROFEN
     Indication: SINUS DISORDER
     Dosage: 1 ONCE OR TWICE A DAY AS NEEDED
     Dates: start: 2010, end: 201502

REACTIONS (2)
  - Reaction to drug excipients [Unknown]
  - Dyspnoea [Recovered/Resolved]
